FAERS Safety Report 11345686 (Version 1)
Quarter: 2015Q3

REPORT INFORMATION
  Report Type: Spontaneous
  Country: FR (occurrence: FR)
  Receive Date: 20150806
  Receipt Date: 20150806
  Transmission Date: 20151125
  Serious: Yes (Disabling, Congenital Anomaly, Other)
  Sender: FDA-Public Use
  Company Number: FR-PFIZER INC-2015256014

PATIENT
  Sex: Male

DRUGS (8)
  1. RISPERDAL CONSTA [Suspect]
     Active Substance: RISPERIDONE
     Dosage: 1 DF, TWICE MONTHLY
     Route: 064
     Dates: start: 20140818, end: 20150510
  2. SERESTA [Suspect]
     Active Substance: OXAZEPAM
     Dosage: UNK
     Route: 064
     Dates: start: 20141010, end: 20150510
  3. IMOVANE [Suspect]
     Active Substance: ZOPICLONE
     Dosage: UNK
     Route: 064
     Dates: start: 20140818, end: 20141010
  4. EFFEXOR [Suspect]
     Active Substance: VENLAFAXINE HYDROCHLORIDE
     Dosage: UNK
     Route: 064
     Dates: start: 20140801, end: 20141010
  5. VALIUM [Suspect]
     Active Substance: DIAZEPAM
     Dosage: UNK
     Route: 064
     Dates: start: 20140818, end: 20141010
  6. THERALENE [Suspect]
     Active Substance: TRIMEPRAZINE
     Dosage: UNK
     Route: 064
     Dates: start: 20140818, end: 20141010
  7. SERETIDE [Concomitant]
     Active Substance: FLUTICASONE FUROATE\SALMETEROL XINAFOATE
     Dosage: UNK
     Route: 064
  8. ATARAX [Suspect]
     Active Substance: HYDROXYZINE\HYDROXYZINE HYDROCHLORIDE
     Dosage: UNK
     Route: 064
     Dates: start: 20141010, end: 20150510

REACTIONS (6)
  - Hypotonia [Unknown]
  - Maternal exposure during pregnancy [Not Recovered/Not Resolved]
  - Growth retardation [Not Recovered/Not Resolved]
  - Single umbilical artery [Recovered/Resolved]
  - Hypoxic-ischaemic encephalopathy [Not Recovered/Not Resolved]
  - Bradycardia [Unknown]

NARRATIVE: CASE EVENT DATE: 20150510
